FAERS Safety Report 7712991-1 (Version None)
Quarter: 2011Q3

REPORT INFORMATION
  Report Type: 
  Country: None (occurrence: None)
  Receive Date: 20110826
  Receipt Date: 20110816
  Transmission Date: 20111222
  Serious: Yes (Other)
  Sender: FDA-Public Use
  Company Number: BE-JNJFOC-20110809273

PATIENT
  Age: 38 Year
  Sex: Female

DRUGS (2)
  1. INFLIXIMAB, RECOMBINANT [Suspect]
     Indication: INFLAMMATORY BOWEL DISEASE
     Dosage: TOTAL OF 7 INFUSIONS
     Route: 042
  2. INFLIXIMAB, RECOMBINANT [Suspect]
     Route: 042

REACTIONS (2)
  - MATERNAL EXPOSURE DURING PREGNANCY [None]
  - DERMATITIS PSORIASIFORM [None]
